FAERS Safety Report 9370213 (Version 3)
Quarter: 2013Q3

REPORT INFORMATION
  Report Type: Report from Study
  Country: US (occurrence: US)
  Receive Date: 20130626
  Receipt Date: 20130827
  Transmission Date: 20140515
  Serious: Yes (Hospitalization)
  Sender: FDA-Public Use
  Company Number: US-ACTELION-A-US2013-84631

PATIENT
  Age: 57 Year
  Sex: Male

DRUGS (8)
  1. TRACLEER [Suspect]
     Indication: PULMONARY ARTERIAL HYPERTENSION
     Dosage: UNK
     Route: 048
  2. ADCIRCA [Concomitant]
  3. LASIX [Concomitant]
     Dosage: 40 MG, UNK
  4. BUMEX [Concomitant]
     Dosage: 2 MG, UNK
  5. LACTULOSE [Concomitant]
  6. METOLAZONE [Concomitant]
  7. AMILORIDE [Concomitant]
  8. KLOR-CON [Concomitant]

REACTIONS (8)
  - Hepatic encephalopathy [Recovering/Resolving]
  - Confusional state [Recovering/Resolving]
  - Ketoacidosis [Recovered/Resolved]
  - Blood potassium decreased [Unknown]
  - Ammonia increased [Unknown]
  - Weight increased [Recovering/Resolving]
  - Hepatic cirrhosis [Recovering/Resolving]
  - Swelling [Recovering/Resolving]
